FAERS Safety Report 5692846-7 (Version None)
Quarter: 2008Q2

REPORT INFORMATION
  Report Type: 
  Country: None (occurrence: None)
  Receive Date: 20080401
  Receipt Date: 20080317
  Transmission Date: 20081010
  Serious: Yes (Hospitalization)
  Sender: FDA-Public Use
  Company Number: CIP08000457

PATIENT
  Age: 69 Year
  Sex: Female

DRUGS (1)
  1. BENET(RISEDRONATE SODIUM) TABLET, UNKNOWNMG [Suspect]
     Indication: OSTEOPOROSIS
     Dosage: ORAL
     Route: 048

REACTIONS (7)
  - ERYTHEMA [None]
  - GINGIVAL PAIN [None]
  - OSTEOMYELITIS [None]
  - PAIN IN JAW [None]
  - PURULENT DISCHARGE [None]
  - TOOTH EXTRACTION [None]
  - TRISMUS [None]
